FAERS Safety Report 4267255-8 (Version None)
Quarter: 2004Q1

REPORT INFORMATION
  Report Type: 
  Country: None (occurrence: None)
  Receive Date: 20040107
  Receipt Date: 20031229
  Transmission Date: 20041129
  Serious: Yes (Hospitalization)
  Sender: FDA-Public Use
  Company Number: JP-JNJFOC-20031205148

PATIENT
  Age: 53 Year
  Sex: Female

DRUGS (5)
  1. LEVOFLOXACIN [Suspect]
     Indication: BRONCHITIS CHRONIC
     Dosage: 200 MG, 2 IN 1 DAY, ORAL
     Route: 048
     Dates: start: 20031120, end: 20031203
  2. RHEUMATREX [Suspect]
     Indication: RHEUMATOID ARTHRITIS
     Dosage: 6 MG, ORAL
     Route: 048
     Dates: start: 20031010
  3. MUCODYNE (CARBOCISTEINE) [Suspect]
     Indication: BRONCHITIS CHRONIC
     Dosage: ORAL
     Route: 048
     Dates: start: 20031120, end: 20031203
  4. HUSCODE (HUSCODE) [Suspect]
     Indication: BRONCHITIS CHRONIC
     Dosage: 3 DOSE(S), ORAL
     Route: 048
     Dates: start: 20031120, end: 20031203
  5. PREDNISOLONE [Concomitant]

REACTIONS (4)
  - ABDOMINAL PAIN [None]
  - BLOOD PRESSURE DECREASED [None]
  - DIARRHOEA [None]
  - DRUG INTERACTION [None]
